FAERS Safety Report 6801746-8 (Version None)
Quarter: 2010Q2

REPORT INFORMATION
  Report Type: 
  Country: None (occurrence: None)
  Receive Date: 20100629
  Receipt Date: 20100618
  Transmission Date: 20101027
  Serious: Yes (Hospitalization)
  Sender: FDA-Public Use
  Company Number: AR-GENZYME-CERZ-1001355

PATIENT

DRUGS (1)
  1. CEREZYME [Suspect]
     Indication: GAUCHER'S DISEASE
     Dosage: 60 U/KG, UNK
     Route: 042
     Dates: start: 20100507

REACTIONS (6)
  - CHEST PAIN [None]
  - DYSPNOEA [None]
  - FLUSHING [None]
  - MALAISE [None]
  - SECRETION DISCHARGE [None]
  - TACHYCARDIA [None]
